FAERS Safety Report 24976928 (Version 2)
Quarter: 2025Q1

REPORT INFORMATION
  Report Type: Report from Study
  Country: DE (occurrence: DE)
  Receive Date: 20250217
  Receipt Date: 20250310
  Transmission Date: 20250408
  Serious: Yes (Hospitalization, Other)
  Sender: PFIZER
  Company Number: DE-PFM-2025-00740

PATIENT
  Sex: Female
  Weight: 49 kg

DRUGS (4)
  1. BRAFTOVI [Suspect]
     Active Substance: ENCORAFENIB
     Indication: Colorectal cancer
     Dosage: 300 MG PER DAY
     Route: 048
     Dates: start: 20230823
  2. BRAFTOVI [Suspect]
     Active Substance: ENCORAFENIB
     Route: 065
     Dates: start: 20240208, end: 20240806
  3. CETUXIMAB [Suspect]
     Active Substance: CETUXIMAB
     Indication: Colorectal cancer
     Dosage: 250 MG/M2, WEEKLY
     Route: 042
     Dates: start: 20230823
  4. CETUXIMAB [Suspect]
     Active Substance: CETUXIMAB
     Dosage: 250 MG/M2, WEEKLY
     Route: 065
     Dates: start: 20240215, end: 20240815

REACTIONS (2)
  - Acute kidney injury [Recovering/Resolving]
  - Mucosal dryness [Recovered/Resolved]

NARRATIVE: CASE EVENT DATE: 20240205
